FAERS Safety Report 13109004 (Version 1)
Quarter: 2017Q1

REPORT INFORMATION
  Report Type: Spontaneous
  Country: IT (occurrence: IT)
  Receive Date: 20170112
  Receipt Date: 20170112
  Transmission Date: 20170428
  Serious: Yes (Other)
  Sender: FDA-Public Use
  Company Number: IT-PFIZER INC-2017010661

PATIENT
  Age: 77 Year
  Sex: Female
  Weight: 62 kg

DRUGS (2)
  1. ALIMTA [Interacting]
     Active Substance: PEMETREXED DISODIUM
     Indication: CHEMOTHERAPY
     Dosage: 500 MG/M2, CYCLIC
     Route: 041
     Dates: start: 20161206
  2. CARBOPLATIN. [Suspect]
     Active Substance: CARBOPLATIN
     Dosage: 330 MG, CYCLIC
     Dates: start: 20161206

REACTIONS (2)
  - Pancreatitis [Recovered/Resolved]
  - Drug interaction [Unknown]

NARRATIVE: CASE EVENT DATE: 20161212
